FAERS Safety Report 12225813 (Version 4)
Quarter: 2016Q2

REPORT INFORMATION
  Report Type: Spontaneous
  Country: JP (occurrence: JP)
  Receive Date: 20160331
  Receipt Date: 20160502
  Transmission Date: 20160815
  Serious: Yes (Hospitalization, Other)
  Sender: FDA-Public Use
  Company Number: JP-MDT-ADR-2016-00598

PATIENT
  Age: 66 Year
  Sex: Male
  Weight: 49 kg

DRUGS (5)
  1. GABALON INTRATHECAL [Suspect]
     Active Substance: BACLOFEN
     Indication: SPINAL CORD INJURY
     Dosage: 130.0 UG/DAY
     Route: 037
     Dates: start: 20151125, end: 20160212
  2. GABALON INTRATHECAL [Suspect]
     Active Substance: BACLOFEN
     Indication: SPINAL CORD INJURY
     Dosage: 120.0 UG/DAY
     Route: 037
     Dates: start: 20151001, end: 20151110
  3. GABALON INTRATHECAL INJECTION [Suspect]
     Active Substance: BACLOFEN
     Indication: SPINAL CORD INJURY
     Dosage: 130 UG/DAY
     Route: 037
     Dates: start: 20150824, end: 20150910
  4. GABALON INTRATHECAL [Suspect]
     Active Substance: BACLOFEN
     Indication: SPINAL CORD INJURY
     Dosage: 100.0 UG/DAY
     Route: 037
     Dates: start: 20151110, end: 20151125
  5. GABALON INTRATHECAL INJECTION [Suspect]
     Active Substance: BACLOFEN
     Indication: SPINAL CORD INJURY
     Dosage: 90.0 UG/DAY
     Route: 037
     Dates: start: 20150910, end: 20150930

REACTIONS (9)
  - Performance status decreased [Recovered/Resolved]
  - Dry skin [Recovered/Resolved]
  - Medical device site erythema [Recovered/Resolved]
  - Medical device site swelling [Recovered/Resolved]
  - Staphylococcal infection [Recovered/Resolved]
  - Hypersensitivity [Recovered/Resolved]
  - Staphylococcus test negative [Recovered/Resolved]
  - Medical device site infection [Recovered/Resolved]
  - Medical device site erosion [Recovered/Resolved]
